FAERS Safety Report 5403390-6 (Version None)
Quarter: 2007Q3

REPORT INFORMATION
  Report Type: 
  Country: None (occurrence: None)
  Receive Date: 20070718
  Receipt Date: 20060921
  Transmission Date: 20080115
  Serious: Yes (Hospitalization)
  Sender: FDA-Public Use
  Company Number: 2006114838

PATIENT

DRUGS (1)
  1. CELEBREX [Suspect]

REACTIONS (1)
  - DERMATITIS EXFOLIATIVE [None]
